FAERS Safety Report 5816987-6 (Version None)
Quarter: 2008Q3

REPORT INFORMATION
  Report Type: 
  Country: None (occurrence: None)
  Receive Date: 20080722
  Receipt Date: 20080711
  Transmission Date: 20090109
  Serious: Yes (Hospitalization)
  Sender: FDA-Public Use
  Company Number: NL-JNJFOC-20080703238

PATIENT
  Sex: Female

DRUGS (7)
  1. TOPAMAX [Suspect]
     Route: 048
  2. TOPAMAX [Suspect]
     Route: 048
  3. TOPAMAX [Suspect]
     Route: 048
  4. TOPAMAX [Suspect]
     Route: 048
  5. TOPAMAX [Suspect]
     Indication: HEADACHE
     Route: 048
  6. MAXALT [Concomitant]
  7. MIRENA [Concomitant]

REACTIONS (5)
  - DEPRESSED MOOD [None]
  - EXTRASYSTOLES [None]
  - HYPOKALAEMIA [None]
  - PALPITATIONS [None]
  - PARAESTHESIA [None]
